FAERS Safety Report 13969347 (Version 10)
Quarter: 2018Q1

REPORT INFORMATION
  Report Type: Report from Study
  Country: FR (occurrence: FR)
  Receive Date: 20170914
  Receipt Date: 20180307
  Transmission Date: 20180508
  Serious: Yes (Death, Life-Threatening, Hospitalization, Other)
  Sender: FDA-Public Use
  Company Number: PHHO2017FR006249

PATIENT
  Age: 53 Year
  Sex: Male
  Weight: 71 kg

DRUGS (43)
  1. VINCRISTINE SULFATE. [Concomitant]
     Active Substance: VINCRISTINE SULFATE
     Indication: PRODUCT USED FOR UNKNOWN INDICATION
     Dosage: 2 MG
     Route: 042
     Dates: start: 20170316, end: 20170323
  2. METHOTREXATE. [Concomitant]
     Active Substance: METHOTREXATE
     Indication: PRODUCT USED FOR UNKNOWN INDICATION
     Dosage: 15 MG
     Route: 065
     Dates: start: 20170317, end: 20170419
  3. TEICOPLANINE [Concomitant]
     Active Substance: TEICOPLANIN
     Dosage: 600 MG
     Route: 042
     Dates: start: 20170401, end: 20170401
  4. POTASSIUM CHLORIDE. [Concomitant]
     Active Substance: POTASSIUM CHLORIDE
     Indication: HYPOKALAEMIA
     Dosage: 3 G
     Route: 042
     Dates: start: 20170329, end: 20170329
  5. AMN107 [Suspect]
     Active Substance: NILOTINIB
     Dosage: 400 MG, QD (UPTO CYCLE 2)
     Route: 048
     Dates: start: 20170510, end: 20170702
  6. ATRIANCE [Suspect]
     Active Substance: NELARABINE
     Indication: ACUTE LYMPHOCYTIC LEUKAEMIA
     Dosage: UNK
     Route: 065
     Dates: start: 20170316
  7. DEXAMETHASONE. [Concomitant]
     Active Substance: DEXAMETHASONE
     Dosage: 40 MG
     Route: 048
     Dates: start: 20170323, end: 20170331
  8. DEXAMETHASONE. [Concomitant]
     Active Substance: DEXAMETHASONE
     Dosage: 40 MG
     Route: 037
     Dates: start: 20170906, end: 20170906
  9. HYDROCORTISONE. [Concomitant]
     Active Substance: HYDROCORTISONE
     Dosage: 20 MG
     Route: 037
     Dates: start: 20170906
  10. TAZOCILLINE [Concomitant]
     Active Substance: PIPERACILLIN SODIUM\TAZOBACTAM SODIUM
     Indication: INFECTION
     Dosage: 12 G
     Route: 042
     Dates: start: 20170327, end: 20170330
  11. CEFTAZIDIME. [Concomitant]
     Active Substance: CEFTAZIDIME
     Dosage: 4 G
     Route: 042
     Dates: start: 20170330, end: 201704
  12. TEICOPLANINE [Concomitant]
     Active Substance: TEICOPLANIN
     Dosage: 800 MG
     Route: 042
     Dates: start: 20170402, end: 201704
  13. POTASSIUM CHLORIDE. [Concomitant]
     Active Substance: POTASSIUM CHLORIDE
     Dosage: 9 G
     Route: 042
     Dates: start: 20170401, end: 201704
  14. TRAMADOL. [Concomitant]
     Active Substance: TRAMADOL
     Indication: PAIN
     Dosage: 300 MG
     Route: 042
     Dates: start: 20170323, end: 20170330
  15. TRAMADOL. [Concomitant]
     Active Substance: TRAMADOL
     Dosage: 100 MG
     Route: 042
     Dates: start: 20170331, end: 20170401
  16. CYTARABINE. [Concomitant]
     Active Substance: CYTARABINE
     Dosage: 5400 MG
     Route: 042
     Dates: start: 20170831, end: 20170901
  17. ESOMEPRAZOLE [Concomitant]
     Active Substance: ESOMEPRAZOLE
     Indication: EPIGASTRIC DISCOMFORT
     Dosage: 20 MG
     Route: 048
     Dates: start: 20170309, end: 20170329
  18. ESOMEPRAZOLE [Concomitant]
     Active Substance: ESOMEPRAZOLE
     Dosage: 20 MG
     Route: 048
     Dates: start: 20170330
  19. MACROGOL [Concomitant]
     Active Substance: POLYETHYLENE GLYCOLS
     Indication: CONSTIPATION
     Dosage: UNK
     Route: 048
     Dates: start: 20170401, end: 201704
  20. POTASSIUM CHLORIDE. [Concomitant]
     Active Substance: POTASSIUM CHLORIDE
     Dosage: 6 G
     Route: 042
     Dates: start: 20170330, end: 20170330
  21. SODIUM CHLORIDE. [Concomitant]
     Active Substance: SODIUM CHLORIDE
     Indication: HYPONATRAEMIA
     Dosage: 4 G
     Route: 042
     Dates: start: 20170322, end: 20170402
  22. ACICLOVIR [Concomitant]
     Active Substance: ACYCLOVIR
     Indication: ORAL HERPES
     Dosage: 1000 MG
     Route: 042
     Dates: start: 20170329, end: 201704
  23. CEFTAZIDIME. [Concomitant]
     Active Substance: CEFTAZIDIME
     Indication: INFECTION
     Dosage: 2 G
     Route: 042
     Dates: start: 20170330, end: 20170330
  24. AMN107 [Suspect]
     Active Substance: NILOTINIB
     Dosage: 200 MG
     Route: 048
     Dates: start: 20170509, end: 20170509
  25. METHOTREXATE. [Concomitant]
     Active Substance: METHOTREXATE
     Dosage: 15.0 MG
     Route: 037
     Dates: start: 20170906, end: 20170906
  26. VITAMIN C [Concomitant]
     Active Substance: ASCORBIC ACID
     Indication: VITAMIN C DEFICIENCY
     Dosage: 1 G
     Route: 048
     Dates: start: 20170331, end: 201704
  27. FUROSEMIDE. [Concomitant]
     Active Substance: FUROSEMIDE
     Indication: ACUTE PULMONARY OEDEMA
     Dosage: 40 MG
     Route: 042
     Dates: start: 20170403, end: 20170403
  28. AMN107 [Suspect]
     Active Substance: NILOTINIB
     Dosage: 400 MG, QD
     Route: 048
     Dates: start: 20170329, end: 20170329
  29. HYDROCORTISONE. [Concomitant]
     Active Substance: HYDROCORTISONE
     Indication: PRODUCT USED FOR UNKNOWN INDICATION
     Dosage: 20 MG
     Route: 037
     Dates: start: 20170317, end: 20170320
  30. POLYETHYLENE GLYCOL [Concomitant]
     Active Substance: POLYETHYLENE GLYCOLS
     Indication: CONSTIPATION
     Dosage: UNK
     Route: 048
     Dates: start: 20170401, end: 201704
  31. NICOTINAMIDE [Concomitant]
     Active Substance: NIACINAMIDE
     Indication: HYPOVITAMINOSIS
     Dosage: 1000 MG
     Route: 048
     Dates: start: 20170331, end: 201704
  32. DEXAMETHASONE. [Concomitant]
     Active Substance: DEXAMETHASONE
     Indication: PRODUCT USED FOR UNKNOWN INDICATION
     Dosage: 40 MG
     Route: 048
     Dates: start: 20170316, end: 20170317
  33. CYTARABINE. [Concomitant]
     Active Substance: CYTARABINE
     Indication: PRODUCT USED FOR UNKNOWN INDICATION
     Dosage: 40 MG
     Route: 065
     Dates: start: 20170317, end: 20170419
  34. POSACONAZOLE [Concomitant]
     Active Substance: POSACONAZOLE
     Indication: MUCOSAL INFLAMMATION
     Dosage: 100 MG
     Route: 048
     Dates: start: 20170303, end: 201704
  35. NEFOPAM HYDROCHLORIDE [Concomitant]
     Active Substance: NEFOPAM HYDROCHLORIDE
     Indication: PAIN
     Dosage: 6 U
     Route: 042
     Dates: start: 20170330, end: 201704
  36. CLORAZEPATE [Concomitant]
     Active Substance: CLORAZEPATE DIPOTASSIUM
     Indication: ANXIETY
     Dosage: 20 MG
     Route: 048
     Dates: start: 20170323, end: 20170329
  37. AMN107 [Suspect]
     Active Substance: NILOTINIB
     Indication: ACUTE LYMPHOCYTIC LEUKAEMIA
     Dosage: 800 MG, QD
     Route: 048
     Dates: start: 20170316, end: 20170328
  38. METHOTREXATE. [Concomitant]
     Active Substance: METHOTREXATE
     Dosage: 15 MG
     Route: 065
     Dates: start: 20170323, end: 20170323
  39. METHOTREXATE. [Concomitant]
     Active Substance: METHOTREXATE
     Dosage: 1800 MG
     Route: 042
     Dates: start: 20170830, end: 20170830
  40. TEICOPLANINE [Concomitant]
     Active Substance: TEICOPLANIN
     Indication: INFECTION
     Dosage: 1200 MG
     Route: 042
     Dates: start: 20170330, end: 20170331
  41. PAROXETINE. [Concomitant]
     Active Substance: PAROXETINE
     Indication: DEPRESSION
     Dosage: 20 MG
     Route: 048
     Dates: start: 20170322, end: 20170403
  42. LACTULOSE. [Concomitant]
     Active Substance: LACTULOSE
     Indication: CONSTIPATION
     Dosage: 40 G
     Route: 048
     Dates: start: 20170331, end: 20170402
  43. ISOSORBIDE DINITRATE. [Concomitant]
     Active Substance: ISOSORBIDE DINITRATE
     Indication: ACUTE PULMONARY OEDEMA
     Dosage: UNK
     Route: 042
     Dates: start: 20170403, end: 20170403

REACTIONS (10)
  - Metabolic encephalopathy [Recovered/Resolved]
  - Febrile bone marrow aplasia [Recovered/Resolved]
  - Haematuria [Recovered/Resolved]
  - Pneumocystis jirovecii pneumonia [Recovered/Resolved]
  - Sepsis [Recovering/Resolving]
  - Hepatic failure [Recovered/Resolved]
  - Hypertensive crisis [Recovered/Resolved]
  - Enterobacter infection [Fatal]
  - Septic shock [Fatal]
  - Multiple organ dysfunction syndrome [Fatal]

NARRATIVE: CASE EVENT DATE: 20170318
